FAERS Safety Report 9508036 (Version 7)
Quarter: 2020Q3

REPORT INFORMATION
  Report Type: Report from Study
  Country: US (occurrence: US)
  Receive Date: 20130909
  Receipt Date: 20200909
  Transmission Date: 20201103
  Serious: Yes (Other)
  Sender: FDA-Public Use
  Company Number: US-SANOFI-AVENTIS-2013SA088844

PATIENT
  Age: 55 Year
  Sex: Female

DRUGS (4)
  1. TERIFLUNOMIDE. [Suspect]
     Active Substance: TERIFLUNOMIDE
     Indication: MULTIPLE SCLEROSIS
     Dosage: 14 MG,QD
     Route: 048
     Dates: start: 20130814, end: 2019
  2. TECFIDERA [Concomitant]
     Active Substance: DIMETHYL FUMARATE
     Indication: MULTIPLE SCLEROSIS
     Dosage: UNK UNK,UNK
     Route: 065
     Dates: start: 2013, end: 2013
  3. KLONOPIN [Concomitant]
     Active Substance: CLONAZEPAM
     Dosage: 10 MG,UNK
     Route: 065
  4. REBIF [Concomitant]
     Active Substance: INTERFERON BETA-1A
     Indication: MULTIPLE SCLEROSIS
     Dosage: UNK UNK,UNK
     Route: 065
     Dates: start: 2009, end: 2013

REACTIONS (19)
  - Bronchitis [Unknown]
  - Cough [Unknown]
  - Gait disturbance [Unknown]
  - Rash pruritic [Unknown]
  - Rash papular [Unknown]
  - Abdominal pain [Unknown]
  - Condition aggravated [Unknown]
  - Foot fracture [Recovering/Resolving]
  - Herpes zoster [Unknown]
  - Extra dose administered [Unknown]
  - Fall [Recovering/Resolving]
  - Fatigue [Unknown]
  - Alopecia [Not Recovered/Not Resolved]
  - Tendon rupture [Not Recovered/Not Resolved]
  - Skin depigmentation [Unknown]
  - Muscle spasms [Unknown]
  - Pain in extremity [Unknown]
  - Psoriasis [Not Recovered/Not Resolved]
  - Nausea [Unknown]

NARRATIVE: CASE EVENT DATE: 20130831
